FAERS Safety Report 4933616-4 (Version None)
Quarter: 2006Q1

REPORT INFORMATION
  Report Type: 
  Country: None (occurrence: None)
  Receive Date: 20060306
  Receipt Date: 20060215
  Transmission Date: 20060701
  Serious: Yes (Hospitalization)
  Sender: FDA-Public Use
  Company Number: JP-ROCHE-437305

PATIENT
  Age: 62 Year
  Sex: Male

DRUGS (5)
  1. TAMIFLU [Suspect]
     Route: 048
     Dates: start: 20060123, end: 20060127
  2. MUCOSOLVAN [Suspect]
     Route: 048
     Dates: start: 20060123, end: 20060127
  3. ASVERIN [Suspect]
     Route: 048
     Dates: start: 20060123, end: 20060127
  4. KLARICID [Suspect]
     Route: 048
     Dates: start: 20060123, end: 20060127
  5. ACETAMINOPHEN [Concomitant]
     Dosage: TAKEN AS NEEDED
     Route: 048

REACTIONS (2)
  - HEPATIC FUNCTION ABNORMAL [None]
  - JAUNDICE [None]
